FAERS Safety Report 6051639-1 (Version None)
Quarter: 2009Q1

REPORT INFORMATION
  Report Type: 
  Country: None (occurrence: None)
  Receive Date: 20090126
  Receipt Date: 20090112
  Transmission Date: 20090719
  Serious: Yes (Life-Threatening)
  Sender: FDA-Public Use
  Company Number: CH-GENENTECH-275802

PATIENT
  Age: 65 Year
  Sex: Male

DRUGS (10)
  1. BEVACIZUMAB [Suspect]
     Indication: ACUTE MYELOID LEUKAEMIA
     Dosage: 670 MG, DAYS 1+15
     Route: 042
     Dates: start: 20080903, end: 20080903
  2. BEVACIZUMAB [Suspect]
     Dosage: 690 MG, QD
     Route: 042
     Dates: start: 20081215
  3. CYTARABINE [Suspect]
     Indication: ACUTE MYELOID LEUKAEMIA
     Dosage: 350 MG, UNK
     Route: 042
     Dates: start: 20080903
  4. CYTARABINE [Suspect]
     Dosage: 3600 MG, QD
     Route: 042
     Dates: start: 20081215
  5. DAUNORUBICIN [Concomitant]
     Indication: DRUG USE FOR UNKNOWN INDICATION
     Dosage: UNK
     Dates: start: 20080903
  6. ASPIRIN [Concomitant]
     Indication: DRUG USE FOR UNKNOWN INDICATION
     Dosage: UNK
     Dates: start: 20080917
  7. METOPROLOL TARTRATE [Concomitant]
     Indication: DRUG USE FOR UNKNOWN INDICATION
     Dosage: UNK
     Dates: start: 20070101
  8. ACEBUTOLOL [Concomitant]
     Indication: DRUG USE FOR UNKNOWN INDICATION
     Dosage: UNK
     Dates: start: 20070101
  9. ATENOLOL [Concomitant]
     Indication: DRUG USE FOR UNKNOWN INDICATION
     Dosage: UNK
     Dates: start: 20070101
  10. AMBISOME [Concomitant]
     Indication: DRUG USE FOR UNKNOWN INDICATION
     Dosage: 350 MG, QD
     Route: 042
     Dates: start: 20090106

REACTIONS (1)
  - CANDIDA PNEUMONIA [None]
